FAERS Safety Report 9635345 (Version 1)
Quarter: 2013Q4

REPORT INFORMATION
  Report Type: Spontaneous
  Country: US (occurrence: US)
  Receive Date: 20131021
  Receipt Date: 20131021
  Transmission Date: 20140711
  Serious: No
  Sender: FDA-Public Use
  Company Number: US-PURDUE-USA-2013-0103885

PATIENT
  Age: 48 Year
  Sex: Female

DRUGS (2)
  1. BUTRANS [Suspect]
     Indication: PAIN
     Dosage: 10 MCG/HR, WEEKLY
     Route: 062
     Dates: start: 20130524, end: 20130616
  2. GABAPENTIN [Concomitant]
     Indication: NEURALGIA
     Dosage: 400 MG, TID
     Route: 048
     Dates: start: 201301

REACTIONS (2)
  - Pain [Unknown]
  - Oedema peripheral [Recovered/Resolved]
